FAERS Safety Report 7570910-5 (Version None)
Quarter: 2011Q2

REPORT INFORMATION
  Report Type: 
  Country: None (occurrence: None)
  Receive Date: 20110620
  Receipt Date: 20110606
  Transmission Date: 20111010
  Serious: Yes (Other)
  Sender: FDA-Public Use
  Company Number: 2011AT000188

PATIENT
  Sex: Male

DRUGS (3)
  1. ESTRADIOL [Suspect]
  2. ESTRONE [Suspect]
  3. TESTOSTERONE [Suspect]

REACTIONS (4)
  - ACCIDENTAL EXPOSURE [None]
  - GROWTH ACCELERATED [None]
  - GYNAECOMASTIA [None]
  - HAIR GROWTH ABNORMAL [None]
